FAERS Safety Report 17615764 (Version 1)
Quarter: 2020Q2

REPORT INFORMATION
  Report Type: Spontaneous
  Country: US (occurrence: US)
  Receive Date: 20200401
  Receipt Date: 20200401
  Transmission Date: 20200713
  Serious: Yes (Death)
  Sender: FDA-Public Use
  Company Number: None

PATIENT
  Sex: Female

DRUGS (13)
  1. FUROSEMIDE. [Concomitant]
     Active Substance: FUROSEMIDE
  2. METHENAM [Concomitant]
  3. VALIUM [Concomitant]
     Active Substance: DIAZEPAM
  4. ACYCLOVIR. [Concomitant]
     Active Substance: ACYCLOVIR
  5. DALFAMPRIDINE. [Suspect]
     Active Substance: DALFAMPRIDINE
     Indication: MULTIPLE SCLEROSIS
     Route: 048
     Dates: start: 20190613
  6. DIAZEPAM. [Concomitant]
     Active Substance: DIAZEPAM
  7. DULOXETINE. [Concomitant]
     Active Substance: DULOXETINE
  8. LOSARTAN. [Concomitant]
     Active Substance: LOSARTAN
  9. AMLODIPINE [Concomitant]
     Active Substance: AMLODIPINE BESYLATE
  10. MYRBETRIQ [Concomitant]
     Active Substance: MIRABEGRON
  11. SOLIFENACIN [Concomitant]
     Active Substance: SOLIFENACIN
  12. BACLOFEN. [Concomitant]
     Active Substance: BACLOFEN
  13. HYDROCHLOROT [Concomitant]
     Active Substance: HYDROCHLOROTHIAZIDE

REACTIONS (1)
  - Death [None]
